FAERS Safety Report 4870149-8 (Version None)
Quarter: 2005Q4

REPORT INFORMATION
  Report Type: 
  Country: None (occurrence: None)
  Receive Date: 20051229
  Receipt Date: 20051229
  Transmission Date: 20060501
  Serious: Yes (Hospitalization)
  Sender: FDA-Public Use
  Company Number: None

PATIENT
  Age: 26 Year
  Sex: Female
  Weight: 61.2356 kg

DRUGS (1)
  1. TOPAMAX [Suspect]
     Indication: MOVEMENT DISORDER
     Dosage: ONE PILL   TWICE A DAY   PO
     Route: 048
     Dates: start: 20000320, end: 20010320

REACTIONS (5)
  - EATING DISORDER [None]
  - MARITAL PROBLEM [None]
  - MOOD SWINGS [None]
  - PARANOIA [None]
  - SUICIDAL IDEATION [None]
